FAERS Safety Report 5586929-X (Version None)
Quarter: 2008Q1

REPORT INFORMATION
  Report Type: 
  Country: None (occurrence: None)
  Receive Date: 20080108
  Receipt Date: 20080108
  Transmission Date: 20080703
  Serious: No
  Sender: FDA-Public Use
  Company Number: None

PATIENT
  Age: 63 Year
  Sex: Male
  Weight: 102.0593 kg

DRUGS (1)
  1. CIPROFLOXACIN HCL [Suspect]
     Indication: INFECTION
     Dosage: 1 TABLET BY MOUTH TWICE A DAY FOR 21 DAYS PO
     Route: 048
     Dates: start: 20070807, end: 20070810

REACTIONS (4)
  - ABASIA [None]
  - ARTHRALGIA [None]
  - BONE PAIN [None]
  - DRUG INTERACTION [None]
